FAERS Safety Report 9609508 (Version 1)
Quarter: 2013Q4

REPORT INFORMATION
  Report Type: Spontaneous
  Country: NE (occurrence: None)
  Receive Date: 20131007
  Receipt Date: 20131007
  Transmission Date: 20140711
  Serious: Yes (Other)
  Sender: FDA-Public Use
  Company Number: NSR_01270_2013

PATIENT
  Age: 15 Year
  Sex: 0

DRUGS (2)
  1. TRAMADOL (TRAMADOL) [Suspect]
     Indication: PRODUCT USED FOR UNKNOWN INDICATION
     Dosage: 840 MG (DOSE CONSUMED PRIOR TO SEIZURE))
  2. CAFFEINE (CAFFEINE) [Suspect]
     Indication: PRODUCT USED FOR UNKNOWN INDICATION
     Dosage: (DF)

REACTIONS (4)
  - Drug abuse [None]
  - Drug dependence [None]
  - Epilepsy [None]
  - Overdose [None]
